FAERS Safety Report 8378099-X (Version None)
Quarter: 2012Q2

REPORT INFORMATION
  Report Type: 
  Country: None (occurrence: None)
  Receive Date: 20120522
  Receipt Date: 20120509
  Transmission Date: 20120825
  Serious: Yes (Death, Hospitalization)
  Sender: FDA-Public Use
  Company Number: US-ACTELION-A-US2012-63690

PATIENT

DRUGS (6)
  1. TRACLEER [Suspect]
     Indication: PULMONARY ARTERIAL HYPERTENSION
     Dosage: 125 MG, BID
     Route: 048
     Dates: start: 20070914, end: 20110502
  2. COUMADIN [Concomitant]
  3. LEXIVA [Concomitant]
  4. EPOPROSTENOL SODIUM [Suspect]
     Indication: PULMONARY ARTERIAL HYPERTENSION
     Dosage: 26 NG/KG, PER MIN
     Route: 042
     Dates: start: 20120229
  5. ADCIRCA [Concomitant]
  6. COMBIVIR [Concomitant]

REACTIONS (3)
  - PULMONARY ARTERIAL HYPERTENSION [None]
  - DEATH [None]
  - RENAL FAILURE [None]
